FAERS Safety Report 7764336-9 (Version None)
Quarter: 2011Q3

REPORT INFORMATION
  Report Type: 
  Country: None (occurrence: None)
  Receive Date: 20110921
  Receipt Date: 20110914
  Transmission Date: 20111222
  Serious: Yes (Other)
  Sender: FDA-Public Use
  Company Number: NL-BRISTOL-MYERS SQUIBB COMPANY-16064990

PATIENT
  Age: 82 Year
  Sex: Female

DRUGS (2)
  1. ORENCIA [Suspect]
     Indication: SYSTEMIC LUPUS ERYTHEMATOSUS
     Dosage: INITIAL DOSE WAS 500MG BUT WAS INCREASED 1/2 YEAR AGO TO 750MG
  2. ANTIBIOTICS [Concomitant]

REACTIONS (3)
  - WEIGHT INCREASED [None]
  - RASH [None]
  - CYSTITIS [None]
